FAERS Safety Report 7061935-7 (Version None)
Quarter: 2010Q4

REPORT INFORMATION
  Report Type: 
  Country: None (occurrence: None)
  Receive Date: 20101026
  Receipt Date: 20101021
  Transmission Date: 20110411
  Serious: Yes (Hospitalization)
  Sender: FDA-Public Use
  Company Number: US-MERCK-1010USA00621

PATIENT
  Age: 58 Year
  Sex: Male

DRUGS (4)
  1. JANUVIA [Suspect]
     Indication: DIABETES MELLITUS
     Route: 048
     Dates: start: 20090701, end: 20100701
  2. METFORMIN [Concomitant]
     Route: 065
     Dates: end: 20100201
  3. VICTOZA [Suspect]
     Route: 065
     Dates: start: 20100201
  4. VICTOZA [Suspect]
     Route: 065
     Dates: end: 20100701

REACTIONS (3)
  - BLOOD GLUCOSE INCREASED [None]
  - DRUG INEFFECTIVE [None]
  - PNEUMONIA [None]
